FAERS Safety Report 8256489-3 (Version None)
Quarter: 2012Q2

REPORT INFORMATION
  Report Type: 
  Country: None (occurrence: None)
  Receive Date: 20120403
  Receipt Date: 20120320
  Transmission Date: 20120825
  Serious: Yes (Other)
  Sender: FDA-Public Use
  Company Number: CHPA2012US005413

PATIENT
  Sex: Female

DRUGS (1)
  1. FERROUS SULFATE TAB [Suspect]
     Dosage: UNK DF, UNK
     Route: 048

REACTIONS (1)
  - RECTAL HAEMORRHAGE [None]
